FAERS Safety Report 24989458 (Version 1)
Quarter: 2025Q1

REPORT INFORMATION
  Report Type: Spontaneous
  Country: US (occurrence: US)
  Receive Date: 20250220
  Receipt Date: 20250220
  Transmission Date: 20250409
  Serious: Yes (Other)
  Sender: ABBVIE
  Company Number: US-ABBVIE-6135176

PATIENT
  Sex: Male

DRUGS (1)
  1. REFRESH CLASSIC [Suspect]
     Active Substance: POLYVINYL ALCOHOL\POVIDONE
     Indication: Dry eye
     Route: 047

REACTIONS (4)
  - Macular degeneration [Unknown]
  - Eye irritation [Unknown]
  - Eye irritation [Not Recovered/Not Resolved]
  - Photophobia [Unknown]
